FAERS Safety Report 12535337 (Version 3)
Quarter: 2016Q3

REPORT INFORMATION
  Report Type: Report from Study
  Country: US (occurrence: US)
  Receive Date: 20160707
  Receipt Date: 20160718
  Transmission Date: 20161109
  Serious: Yes (Hospitalization, Other)
  Sender: FDA-Public Use
  Company Number: US-GILEAD-2016-0222254

PATIENT
  Age: 25 Year
  Sex: Male
  Weight: 53.97 kg

DRUGS (8)
  1. AMBRISENTAN [Suspect]
     Active Substance: AMBRISENTAN
     Indication: PULMONARY ARTERIAL HYPERTENSION
     Dosage: 10 MG, QD
     Route: 065
     Dates: start: 20100713
  2. SINGULAIR [Concomitant]
     Active Substance: MONTELUKAST SODIUM
  3. TYVASO [Concomitant]
     Active Substance: TREPROSTINIL
  4. OXYGEN. [Concomitant]
     Active Substance: OXYGEN
  5. PROZAC [Concomitant]
     Active Substance: FLUOXETINE HYDROCHLORIDE
  6. PROAIR HFA [Concomitant]
     Active Substance: ALBUTEROL SULFATE
  7. PRILOSEC [Concomitant]
     Active Substance: OMEPRAZOLE MAGNESIUM
  8. ADCIRCA [Concomitant]
     Active Substance: TADALAFIL

REACTIONS (2)
  - Sepsis [Recovered/Resolved]
  - Meningitis [Recovered/Resolved]

NARRATIVE: CASE EVENT DATE: 20160703
